FAERS Safety Report 7974861-3 (Version None)
Quarter: 2011Q4

REPORT INFORMATION
  Report Type: 
  Country: None (occurrence: None)
  Receive Date: 20111213
  Receipt Date: 20111207
  Transmission Date: 20120403
  Serious: Yes (Other)
  Sender: FDA-Public Use
  Company Number: BR-MERCK-1112BRA00020

PATIENT
  Sex: Female
  Weight: 52 kg

DRUGS (3)
  1. CALCIUM CARBONATE AND CHOLECALCIFEROL [Concomitant]
     Route: 065
  2. ATORVASTATIN [Concomitant]
     Route: 065
  3. FOSAMAX [Suspect]
     Indication: OSTEOPOROSIS
     Route: 065
     Dates: start: 20040101, end: 20110101

REACTIONS (6)
  - IMPAIRED HEALING [None]
  - NEOPLASM MALIGNANT [None]
  - BREATH ODOUR [None]
  - OSTEOMYELITIS CHRONIC [None]
  - PAIN [None]
  - GINGIVAL DISORDER [None]
